FAERS Safety Report 6647620-1 (Version None)
Quarter: 2010Q1

REPORT INFORMATION
  Report Type: 
  Country: None (occurrence: None)
  Receive Date: 20100323
  Receipt Date: 20100323
  Transmission Date: 20100710
  Serious: Yes (Disabling)
  Sender: FDA-Public Use
  Company Number: None

PATIENT
  Age: 55 Year
  Sex: Female
  Weight: 79.3795 kg

DRUGS (7)
  1. ABILIFY [Suspect]
     Indication: BIPOLAR DISORDER
     Dosage: 15MG ONE PO IN AM PO
     Route: 048
     Dates: start: 20080718, end: 20100110
  2. WELLBUTRIN SR [Concomitant]
  3. ESKALITH CR [Concomitant]
  4. ZYPREXA [Concomitant]
  5. PAXIL [Concomitant]
  6. LAMICTAL CD [Concomitant]
  7. KLONOIN [Concomitant]

REACTIONS (2)
  - FALL [None]
  - TREMOR [None]
